FAERS Safety Report 8348388-3 (Version None)
Quarter: 2012Q2

REPORT INFORMATION
  Report Type: 
  Country: None (occurrence: None)
  Receive Date: 20120509
  Receipt Date: 20120507
  Transmission Date: 20120825
  Serious: Yes (Death, Other)
  Sender: FDA-Public Use
  Company Number: JP-ABBOTT-11P-087-0865893-00

PATIENT
  Age: 79 Year
  Sex: Female
  Weight: 37 kg

DRUGS (5)
  1. RIFAMPICIN [Concomitant]
     Indication: ATYPICAL MYCOBACTERIAL INFECTION
     Route: 048
     Dates: start: 20090831, end: 20101202
  2. LACTOMIN [Concomitant]
     Indication: PROPHYLAXIS
     Dosage: 2G DAILY
     Route: 048
     Dates: start: 20090831, end: 20101202
  3. CLARITHROMYCIN [Suspect]
     Indication: ATYPICAL MYCOBACTERIAL INFECTION
     Route: 048
     Dates: start: 20090831, end: 20101202
  4. ETHAMBUTOL HYDROCHLORIDE [Concomitant]
     Indication: ATYPICAL MYCOBACTERIAL INFECTION
     Route: 048
     Dates: start: 20090831, end: 20101202
  5. SODIUM GUALENATE HYDRATE/L-GLUTAMINE [Concomitant]
     Indication: PROPHYLAXIS
     Dosage: 1G DAILY
     Route: 048
     Dates: start: 20090831, end: 20101202

REACTIONS (2)
  - HYDROCEPHALUS [None]
  - PNEUMONIA [None]
